FAERS Safety Report 17037693 (Version 2)
Quarter: 2020Q2

REPORT INFORMATION
  Report Type: Report from Study
  Country: DE (occurrence: DE)
  Receive Date: 20191115
  Receipt Date: 20200609
  Transmission Date: 20200713
  Serious: Yes (Hospitalization, Other)
  Sender: FDA-Public Use
  Company Number: PHHY2018DE048814

PATIENT
  Sex: Male
  Weight: 95 kg

DRUGS (22)
  1. TILIDINE [Concomitant]
     Active Substance: TILIDINE
     Indication: ANKYLOSING SPONDYLITIS
     Dosage: DOSE AS NEEDED, PRN
     Route: 048
     Dates: start: 201705
  2. FEBUXOSTAT. [Concomitant]
     Active Substance: FEBUXOSTAT
     Indication: GOUTY ARTHRITIS
     Dosage: 80 MG, QD
     Route: 048
     Dates: start: 20171012
  3. COSENTYX [Suspect]
     Active Substance: SECUKINUMAB
     Dosage: 150 MG (PER APPLICATION)
     Route: 065
     Dates: start: 20170531
  4. COSENTYX [Suspect]
     Active Substance: SECUKINUMAB
     Dosage: 150 MG (PER APPLICATION)
     Route: 065
     Dates: start: 20170607
  5. MTX [Concomitant]
     Active Substance: METHOTREXATE SODIUM
     Indication: ANKYLOSING SPONDYLITIS
     Dosage: 20 MG, QW
     Route: 058
     Dates: start: 200710
  6. PREDNISONE. [Concomitant]
     Active Substance: PREDNISONE
     Indication: ANKYLOSING SPONDYLITIS
     Dosage: 5 MG, QD
     Route: 048
     Dates: start: 201705, end: 20171113
  7. CALCIMAGON [Concomitant]
     Active Substance: CALCIUM
     Indication: OSTEOPOROSIS PROPHYLAXIS
     Dosage: D3, BID
     Route: 048
     Dates: start: 20070322
  8. DICLOFENAC [Concomitant]
     Active Substance: DICLOFENAC
     Indication: ANKYLOSING SPONDYLITIS
     Dosage: AS NEEDED, PRN
     Route: 048
     Dates: start: 20071019, end: 20171012
  9. COSENTYX [Suspect]
     Active Substance: SECUKINUMAB
     Dosage: 150 MG (PER APPLICATION)
     Route: 065
     Dates: start: 20170614
  10. COSENTYX [Suspect]
     Active Substance: SECUKINUMAB
     Dosage: 150 MG (PER APPLICATION)
     Route: 065
     Dates: start: 20170621
  11. COSENTYX [Suspect]
     Active Substance: SECUKINUMAB
     Dosage: 150 MG (PER APPLICATION)
     Route: 065
     Dates: end: 20171221
  12. COSENTYX [Suspect]
     Active Substance: SECUKINUMAB
     Indication: ANKYLOSING SPONDYLITIS
     Dosage: 150 MG (ONCE)
     Route: 065
     Dates: start: 20170524
  13. COSENTYX [Suspect]
     Active Substance: SECUKINUMAB
     Dosage: 150 MG (PER APPLICATION)
     Route: 065
     Dates: start: 20171021
  14. COSENTYX [Suspect]
     Active Substance: SECUKINUMAB
     Dosage: 150 MG (PER APPLICATION)
     Route: 065
     Dates: start: 20170721
  15. COSENTYX [Suspect]
     Active Substance: SECUKINUMAB
     Dosage: 150 MG (PER APPLICATION)
     Route: 065
     Dates: start: 20170821
  16. FOLIC ACID. [Concomitant]
     Active Substance: FOLIC ACID
     Indication: PROPHYLAXIS
     Dosage: 5 MG, QW
     Route: 048
     Dates: start: 200710
  17. DICLOFENAC [Concomitant]
     Active Substance: DICLOFENAC
     Dosage: UNK
     Route: 048
     Dates: start: 201711, end: 201711
  18. VALORON [Concomitant]
     Indication: ANKYLOSING SPONDYLITIS
     Dosage: DSOE AS NEEDED, PRN
     Route: 048
     Dates: start: 20090311, end: 20171012
  19. COLCHICUM [Concomitant]
     Active Substance: COLCHICINE
     Indication: GOUTY ARTHRITIS
     Dosage: 0.5 MG, BID
     Route: 048
     Dates: start: 201702
  20. COSENTYX [Suspect]
     Active Substance: SECUKINUMAB
     Dosage: 150 MG (PER APPLICATION)
     Route: 065
     Dates: start: 20170921
  21. COSENTYX [Suspect]
     Active Substance: SECUKINUMAB
     Dosage: 150 MG (PER APPLICATION)
     Route: 065
     Dates: start: 20171121
  22. PREDNISONE. [Concomitant]
     Active Substance: PREDNISONE
     Dosage: 10 MG, QD
     Route: 048
     Dates: start: 2017

REACTIONS (14)
  - Abdominal pain [Recovered/Resolved]
  - White blood cell count increased [Recovered/Resolved]
  - Pyrexia [Recovered/Resolved]
  - Diarrhoea [Recovered/Resolved]
  - Oesophageal candidiasis [Recovered/Resolved]
  - Gastrointestinal wall thickening [Unknown]
  - Enterocolitis haemorrhagic [Recovered/Resolved]
  - Pulmonary embolism [Unknown]
  - Arthritis [Recovering/Resolving]
  - C-reactive protein increased [Not Recovered/Not Resolved]
  - Vomiting [Recovered/Resolved]
  - Lower gastrointestinal haemorrhage [Recovered/Resolved]
  - Ankylosing spondylitis [Not Recovered/Not Resolved]
  - Blood pressure fluctuation [Recovering/Resolving]

NARRATIVE: CASE EVENT DATE: 201711
